FAERS Safety Report 4818047-X (Version None)
Quarter: 2005Q4

REPORT INFORMATION
  Report Type: 
  Country: None (occurrence: None)
  Receive Date: 20051101
  Receipt Date: 20051101
  Transmission Date: 20060501
  Serious: No
  Sender: FDA-Public Use
  Company Number: None

PATIENT
  Age: 32 Year
  Sex: Female
  Weight: 86.1834 kg

DRUGS (2)
  1. DEPO-PROVERA [Suspect]
     Dosage: 1 SHOT EVERY3 MONTHS (I RECEIVED 2 SHOTS)
     Dates: start: 20030801, end: 20031001
  2. ZYRTEC [Concomitant]

REACTIONS (6)
  - DEPRESSION [None]
  - FATIGUE [None]
  - FEELING ABNORMAL [None]
  - HYPOTHYROIDISM [None]
  - PERIPHERAL COLDNESS [None]
  - WEIGHT INCREASED [None]
